FAERS Safety Report 9557448 (Version 9)
Quarter: 2017Q1

REPORT INFORMATION
  Report Type: Spontaneous
  Country: CN (occurrence: CN)
  Receive Date: 20130926
  Receipt Date: 20170328
  Transmission Date: 20170429
  Serious: Yes (Life-Threatening, Hospitalization, Disabling)
  Sender: FDA-Public Use
  Company Number: CN-BAYER-2013-115930

PATIENT
  Age: 67 Year
  Sex: Female

DRUGS (2)
  1. ULTRAVIST [Suspect]
     Active Substance: IOPROMIDE
     Indication: COMPUTERISED TOMOGRAM THORAX
     Dosage: UNK, ONCE
     Dates: start: 20121202, end: 20121202
  2. ULTRAVIST [Suspect]
     Active Substance: IOPROMIDE
     Indication: COMPUTERISED TOMOGRAM THORAX
     Dosage: 95 ML, ONCE
     Dates: start: 20130922, end: 20130922

REACTIONS (19)
  - Fungal infection [Unknown]
  - Hypokalaemia [Unknown]
  - Loss of consciousness [Not Recovered/Not Resolved]
  - Apallic syndrome [Not Recovered/Not Resolved]
  - Infection [Unknown]
  - Cardiac arrest [Recovered/Resolved]
  - Apnoea [None]
  - Anaphylactic shock [None]
  - Lung infection [Unknown]
  - Hypocalcaemia [Unknown]
  - Hypoproteinaemia [Unknown]
  - Stress ulcer [Unknown]
  - Labile blood pressure [None]
  - Coma [Not Recovered/Not Resolved]
  - Hepatic failure [Unknown]
  - Brain oedema [Unknown]
  - Blood pressure immeasurable [None]
  - Hyponatraemia [Unknown]
  - Sinus tachycardia [Unknown]

NARRATIVE: CASE EVENT DATE: 20130922
